FAERS Safety Report 7012811-7 (Version None)
Quarter: 2010Q3

REPORT INFORMATION
  Report Type: 
  Country: None (occurrence: None)
  Receive Date: 20100924
  Receipt Date: 20100916
  Transmission Date: 20110219
  Serious: Yes (Other)
  Sender: FDA-Public Use
  Company Number: B0671070A

PATIENT
  Sex: Female

DRUGS (8)
  1. LAMICTAL [Suspect]
     Dosage: 25MG PER DAY
     Route: 048
     Dates: start: 20100326
  2. LEPONEX [Suspect]
     Dosage: 25MG PER DAY
     Route: 048
     Dates: start: 20100315, end: 20100329
  3. RISPERDAL [Suspect]
     Dosage: .5ML PER DAY
     Route: 048
     Dates: start: 20100305, end: 20100319
  4. TRANXENE [Suspect]
     Indication: ANXIETY
     Dosage: 5MG PER DAY
     Route: 048
     Dates: start: 20100305
  5. TRIMEPRAZINE TAB [Suspect]
     Indication: ANXIETY
     Route: 048
     Dates: start: 20100305, end: 20100428
  6. RIVOTRIL [Suspect]
     Indication: ANXIETY
     Dosage: 10MG THREE TIMES PER DAY
     Route: 048
     Dates: start: 20100324
  7. EFFEXOR [Suspect]
     Indication: DEPRESSION
     Route: 048
     Dates: start: 20100324
  8. LEVOTHYROXINE SODIUM [Concomitant]
     Indication: HYPOTHYROIDISM
     Dosage: 50MCG PER DAY
     Route: 048

REACTIONS (2)
  - LEUKOPENIA [None]
  - NEUTROPENIA [None]
